FAERS Safety Report 20092036 (Version 1)
Quarter: 2021Q4

REPORT INFORMATION
  Report Type: Spontaneous
  Country: DE (occurrence: DE)
  Receive Date: 20211119
  Receipt Date: 20211119
  Transmission Date: 20220303
  Serious: Yes (Other)
  Sender: FDA-Public Use
  Company Number: DE-BRISTOL-MYERS SQUIBB COMPANY-BMS-2021-060221

PATIENT
  Age: 77 Year
  Sex: Male
  Weight: 85 kg

DRUGS (16)
  1. PREDNISOLONE [Suspect]
     Active Substance: PREDNISOLONE
     Indication: Granulomatosis with polyangiitis
     Dosage: 5 MILLIGRAM, (GIVEN CONTINUOUSLY LESS THAN EQUAL TO 48H BEFORE ADVERSE EVENT, QD)
     Route: 065
  2. ELIQUIS [Suspect]
     Active Substance: APIXABAN
     Indication: Pulmonary embolism
     Dosage: 10 MILLIGRAM, QD, (5 MILLIGRAM, BID)
     Route: 048
     Dates: start: 201804, end: 20200921
  3. ELIQUIS [Suspect]
     Active Substance: APIXABAN
     Dosage: 10 MILLIGRAM, Q2D, (FOR 7 DAYS. THEN 5 MG TWICE DAILY BY MOUTH)
     Route: 048
     Dates: start: 20210428
  4. CHOLECALCIFEROL [Concomitant]
     Active Substance: CHOLECALCIFEROL
     Indication: Product used for unknown indication
     Dosage: 1000 INTERNATIONAL UNIT, QD
     Route: 065
  5. COTRIM [Concomitant]
     Active Substance: SULFAMETHOXAZOLE\TRIMETHOPRIM
     Indication: Product used for unknown indication
     Dosage: 960 MILLIGRAM, QD, (MON-WED-FRI)
     Route: 065
  6. CHOLECALCIFEROL [Concomitant]
     Active Substance: CHOLECALCIFEROL
     Indication: Product used for unknown indication
     Dosage: 20000 INTERNATIONAL UNIT, QD, (CAPSULE EVERY 14 DAYS)
     Route: 065
  7. TAMSULOSIN HYDROCHLORIDE [Concomitant]
     Active Substance: TAMSULOSIN HYDROCHLORIDE
     Indication: Product used for unknown indication
     Dosage: 0.4 MILLIGRAM, QD
     Route: 065
  8. VITAMIN B12                        /00056201/ [Concomitant]
     Indication: Product used for unknown indication
     Dosage: 1000 PG 1X / WEEK ON TUESDAYS
     Route: 042
  9. RITUXIMAB [Concomitant]
     Active Substance: RITUXIMAB
     Indication: Product used for unknown indication
     Dosage: 500 MILLIGRAM, Q6MO
     Route: 042
  10. ALLOPURINOL [Concomitant]
     Active Substance: ALLOPURINOL
     Indication: Product used for unknown indication
     Dosage: 100 MILLIGRAM, QD
     Route: 065
  11. TORSEMIDE [Concomitant]
     Active Substance: TORSEMIDE
     Indication: Product used for unknown indication
     Dosage: 10 MILLIGRAM, QD
     Route: 065
  12. NOVALGIN                           /00169801/ [Concomitant]
     Indication: Product used for unknown indication
     Dosage: 500 MILLIGRAM, (IF NEEDED)
     Route: 065
  13. LORMETAZEPAM [Concomitant]
     Active Substance: LORMETAZEPAM
     Indication: Product used for unknown indication
     Dosage: 1 MILLIGRAM, (IF NEEDED)
     Route: 065
  14. PANTOPRAZOLE [Concomitant]
     Active Substance: PANTOPRAZOLE
     Indication: Product used for unknown indication
     Dosage: 40 MILLIGRAM, QD
     Route: 065
  15. METOPROLOL [Concomitant]
     Active Substance: METOPROLOL
     Indication: Product used for unknown indication
     Dosage: 95 MILLIGRAM, QD
     Route: 065
  16. METOPROLOL [Concomitant]
     Active Substance: METOPROLOL
     Dosage: 95 MILLIGRAM, QD, (47.5 MILLIGRAM, BID)
     Route: 065

REACTIONS (6)
  - Haemorrhage [Recovered/Resolved]
  - Haematoma [Recovered/Resolved]
  - Muscle rupture [Unknown]
  - Haemorrhagic diathesis [Recovered/Resolved]
  - Contusion [Unknown]
  - Intentional product use issue [Unknown]

NARRATIVE: CASE EVENT DATE: 20200216
